FAERS Safety Report 16787624 (Version 1)
Quarter: 2019Q4

REPORT INFORMATION
  Report Type: Spontaneous
  Country: US (occurrence: US)
  Receive Date: 20190909
  Receipt Date: 20190909
  Transmission Date: 20200122
  Serious: Yes (Other)
  Sender: FDA-Public Use
  Company Number: None

PATIENT
  Age: 61 Year
  Sex: Female
  Weight: 99 kg

DRUGS (1)
  1. TRULICITY [Suspect]
     Active Substance: DULAGLUTIDE
     Indication: PRODUCT USED FOR UNKNOWN INDICATION
     Dosage: ?          QUANTITY:1 INJECTION(S);OTHER ROUTE:INJECTION?
     Dates: start: 20190820, end: 20190827

REACTIONS (9)
  - Back pain [None]
  - Musculoskeletal pain [None]
  - Dizziness [None]
  - Nausea [None]
  - Fear [None]
  - Gastric disorder [None]
  - Stress [None]
  - Diarrhoea [None]
  - Asthenia [None]

NARRATIVE: CASE EVENT DATE: 20190820
